FAERS Safety Report 14485490 (Version 1)
Quarter: 2018Q1

REPORT INFORMATION
  Report Type: Spontaneous
  Country: IE (occurrence: IE)
  Receive Date: 20180205
  Receipt Date: 20180205
  Transmission Date: 20180509
  Serious: Yes (Other)
  Sender: FDA-Public Use
  Company Number: IE-JNJFOC-20180203088

PATIENT
  Age: 23 Year
  Sex: Female

DRUGS (3)
  1. IBUPROFEN. [Concomitant]
     Active Substance: IBUPROFEN
     Indication: PRODUCT USED FOR UNKNOWN INDICATION
     Route: 065
  2. TRAMADOL HYDROCHLORIDE. [Suspect]
     Active Substance: TRAMADOL HYDROCHLORIDE
     Indication: PAIN MANAGEMENT
     Route: 065
  3. TRAMADOL HYDROCHLORIDE. [Suspect]
     Active Substance: TRAMADOL HYDROCHLORIDE
     Indication: RHEUMATOID ARTHRITIS
     Route: 065

REACTIONS (14)
  - Depressed mood [Recovered/Resolved]
  - Diarrhoea [Recovered/Resolved]
  - Drug withdrawal syndrome [Recovered/Resolved]
  - Lethargy [Recovered/Resolved]
  - Fatigue [Recovered/Resolved]
  - Sensation of foreign body [Recovered/Resolved]
  - Abdominal pain [Recovered/Resolved]
  - Muscle twitching [Recovered/Resolved]
  - Food aversion [Recovered/Resolved]
  - Formication [Recovered/Resolved]
  - Influenza like illness [Recovered/Resolved]
  - Emotional distress [Recovered/Resolved]
  - Insomnia [Recovered/Resolved]
  - Restlessness [Recovered/Resolved]

NARRATIVE: CASE EVENT DATE: 20100303
